FAERS Safety Report 7591160-2 (Version None)
Quarter: 2011Q3

REPORT INFORMATION
  Report Type: 
  Country: None (occurrence: None)
  Receive Date: 20110705
  Receipt Date: 20110624
  Transmission Date: 20111222
  Serious: Yes (Other)
  Sender: FDA-Public Use
  Company Number: US-ASTRAZENECA-2011SE38310

PATIENT
  Age: 54 Year
  Sex: Male

DRUGS (2)
  1. NEXIUM [Concomitant]
     Indication: GASTROOESOPHAGEAL REFLUX DISEASE
  2. TOPROL-XL [Suspect]
     Indication: PALPITATIONS
     Route: 048
     Dates: start: 20091201

REACTIONS (5)
  - PERIPHERAL COLDNESS [None]
  - PNEUMONIA [None]
  - FATIGUE [None]
  - HEART VALVE INCOMPETENCE [None]
  - OFF LABEL USE [None]
